FAERS Safety Report 19840426 (Version 1)
Quarter: 2021Q3

REPORT INFORMATION
  Report Type: Spontaneous
  Country: US (occurrence: US)
  Receive Date: 20210914
  Receipt Date: 20210914
  Transmission Date: 20211014
  Serious: No
  Sender: FDA-Public Use
  Company Number: None

PATIENT
  Age: 72 Year
  Sex: Male

DRUGS (1)
  1. HEPARIN (HEPARIN NA 1000UNT/ML INJ) [Suspect]
     Active Substance: HEPARIN SODIUM
     Indication: AORTIC VALVE REPLACEMENT
     Dates: start: 20180220, end: 20180306

REACTIONS (3)
  - Condition aggravated [None]
  - Heparin-induced thrombocytopenia [None]
  - Anaemia [None]

NARRATIVE: CASE EVENT DATE: 20180228
